FAERS Safety Report 14154810 (Version 1)
Quarter: 2017Q4

REPORT INFORMATION
  Report Type: Spontaneous
  Country: US (occurrence: US)
  Receive Date: 20171102
  Receipt Date: 20171102
  Transmission Date: 20180321
  Serious: Yes (Life-Threatening)
  Sender: FDA-Public Use
  Company Number: US-ALKERMES INC.-ALK-2017-004649

PATIENT
  Age: 22 Year
  Sex: Male

DRUGS (1)
  1. VIVITROL [Suspect]
     Active Substance: NALTREXONE
     Indication: PRODUCT USED FOR UNKNOWN INDICATION
     Dosage: 380 MG, QMO
     Route: 030
     Dates: start: 201706

REACTIONS (2)
  - Apparent death [Unknown]
  - Drug dose omission [Unknown]

NARRATIVE: CASE EVENT DATE: 2017
